FAERS Safety Report 15881110 (Version 3)
Quarter: 2019Q4

REPORT INFORMATION
  Report Type: Report from Study
  Country: ZA (occurrence: ZA)
  Receive Date: 20190128
  Receipt Date: 20191023
  Transmission Date: 20200122
  Serious: Yes (Life-Threatening)
  Sender: FDA-Public Use
  Company Number: ZA-SAKK-2019SA020185AA

PATIENT
  Age: 34 Year
  Sex: Female

DRUGS (5)
  1. INSULIN GLULISINE [Suspect]
     Active Substance: INSULIN GLULISINE
     Dosage: 3 U BEFORE SUPPER, BEFORE BREAKFAST AND AFTER LUNCH, TID
     Dates: start: 20180924
  2. INSULIN GLULISINE [Suspect]
     Active Substance: INSULIN GLULISINE
     Dosage: 24 U, QD(BEFORE BREAKFAST)
     Dates: start: 20180801
  3. INSULIN GLARGINE [Suspect]
     Active Substance: INSULIN GLARGINE
     Dosage: AFTER SUPPER 6 UNIT AND BEFORE BREAKFAST 24 UNIT, BID
     Dates: start: 20170101
  4. GLUCOPHAGE XR [Concomitant]
     Active Substance: METFORMIN HYDROCHLORIDE
     Dosage: BEFORE LUNCH 500 MG, BEFORE SUPPER 1000MG, BEFORE BREAKFAST 1000 MG, TID
     Dates: start: 20140410
  5. METFORMIN [Concomitant]
     Active Substance: METFORMIN HYDROCHLORIDE
     Dosage: BEFORE SUPPER 1000MG BEFORE LUNCH 500 MG AND BEFORE BREAKFAST 1000 MG, TID
     Dates: start: 20140101

REACTIONS (5)
  - Hypoglycaemia [Recovered/Resolved]
  - Hypoglycaemia [Recovered/Resolved]
  - Product use issue [Unknown]
  - Injection site bruising [Recovered/Resolved]
  - Fatigue [Recovered/Resolved]

NARRATIVE: CASE EVENT DATE: 20170101
